FAERS Safety Report 22363738 (Version 1)
Quarter: 2023Q2

REPORT INFORMATION
  Report Type: Spontaneous
  Country: US (occurrence: None)
  Receive Date: 20230525
  Receipt Date: 20230525
  Transmission Date: 20230722
  Serious: No
  Sender: FDA-Public Use
  Company Number: 2023A118114

PATIENT
  Age: 26925 Day
  Sex: Male
  Weight: 79.4 kg

DRUGS (1)
  1. FARXIGA [Suspect]
     Active Substance: DAPAGLIFLOZIN PROPANEDIOL
     Indication: Chronic kidney disease
     Route: 048
     Dates: start: 20230512, end: 20230520

REACTIONS (3)
  - Pruritus genital [Unknown]
  - Tenderness [Unknown]
  - Penile swelling [Unknown]

NARRATIVE: CASE EVENT DATE: 20230515
